FAERS Safety Report 6239869-7 (Version None)
Quarter: 2009Q2

REPORT INFORMATION
  Report Type: 
  Country: None (occurrence: None)
  Receive Date: 20090619
  Receipt Date: 20090613
  Transmission Date: 20091009
  Serious: Yes (Other)
  Sender: FDA-Public Use
  Company Number: CHPA2009US13592

PATIENT
  Age: 55 Year
  Sex: Female

DRUGS (2)
  1. MAALOX ANTIACID/ANTIGAS MAX STR MULTI SYMPTOM [Suspect]
     Indication: GASTROOESOPHAGEAL REFLUX DISEASE
     Dosage: QD, ORAL
     Route: 048
  2. DRUG THERAPY NOS (DRUG THERAPY NOS) [Concomitant]

REACTIONS (3)
  - INTENTIONAL DRUG MISUSE [None]
  - UTERINE CANCER [None]
  - WRONG TECHNIQUE IN DRUG USAGE PROCESS [None]
